FAERS Safety Report 13276604 (Version 1)
Quarter: 2017Q1

REPORT INFORMATION
  Report Type: Spontaneous
  Country: US (occurrence: US)
  Receive Date: 20170227
  Receipt Date: 20170227
  Transmission Date: 20170428
  Serious: No
  Sender: FDA-Public Use
  Company Number: None

PATIENT
  Age: 50 Year
  Sex: Female

DRUGS (1)
  1. GLATOPA [Suspect]
     Active Substance: GLATIRAMER ACETATE
     Indication: MULTIPLE SCLEROSIS
     Route: 058
     Dates: start: 20170127, end: 20170218

REACTIONS (5)
  - Gait disturbance [None]
  - Dizziness [None]
  - Product substitution issue [None]
  - Multiple sclerosis relapse [None]
  - Headache [None]

NARRATIVE: CASE EVENT DATE: 20170210
